FAERS Safety Report 7378249-8 (Version None)
Quarter: 2011Q1

REPORT INFORMATION
  Report Type: 
  Country: None (occurrence: None)
  Receive Date: 20110328
  Receipt Date: 20110322
  Transmission Date: 20110831
  Serious: Yes (Hospitalization)
  Sender: FDA-Public Use
  Company Number: B0707453A

PATIENT
  Sex: Female

DRUGS (11)
  1. AUGMENTIN [Suspect]
     Indication: SKIN ULCER
     Route: 048
  2. AMITRIPTYLINE HCL [Suspect]
     Indication: PRODUCT USED FOR UNKNOWN INDICATION
     Route: 048
     Dates: end: 20100830
  3. COZAAR [Suspect]
     Indication: HYPERTENSION
     Route: 048
     Dates: end: 20100909
  4. LANTUS [Concomitant]
     Route: 065
  5. TAZOCILLINE [Concomitant]
     Route: 042
  6. DIAMICRON [Suspect]
     Indication: TYPE 2 DIABETES MELLITUS
     Route: 048
     Dates: end: 20100830
  7. RULID [Suspect]
     Indication: SKIN ULCER
     Dosage: 150MG TWICE PER DAY
     Route: 048
  8. NOVORAPID [Concomitant]
     Route: 065
  9. SURGESTONE [Concomitant]
     Indication: UTERINE LEIOMYOMA
     Dosage: 1UNIT PER DAY
     Route: 048
  10. AMLODIPINE BESYLATE [Suspect]
     Indication: HYPERTENSION
     Route: 048
     Dates: end: 20100909
  11. STAGID [Concomitant]
     Indication: TYPE 2 DIABETES MELLITUS
     Dosage: 700MG THREE TIMES PER DAY
     Route: 048
     Dates: start: 20090401, end: 20100713

REACTIONS (5)
  - HEPATIC STEATOSIS [None]
  - DIABETES MELLITUS INADEQUATE CONTROL [None]
  - WEIGHT INCREASED [None]
  - HEPATITIS [None]
  - HEPATIC ENZYME INCREASED [None]
